FAERS Safety Report 13341122 (Version 3)
Quarter: 2018Q2

REPORT INFORMATION
  Report Type: Report from Study
  Country: IT (occurrence: IT)
  Receive Date: 20170316
  Receipt Date: 20180420
  Transmission Date: 20180711
  Serious: Yes (Hospitalization)
  Sender: FDA-Public Use
  Company Number: IT-TEVA-749211ACC

PATIENT
  Age: 15 Year
  Sex: Female

DRUGS (1)
  1. LEVETIRACETAM. [Suspect]
     Active Substance: LEVETIRACETAM
     Indication: PRODUCT USED FOR UNKNOWN INDICATION
     Dosage: 10 G TOTAL
     Route: 048
     Dates: start: 20161027, end: 20161028

REACTIONS (3)
  - Psychomotor hyperactivity [Unknown]
  - Substance abuser [Unknown]
  - Drug abuse [Unknown]

NARRATIVE: CASE EVENT DATE: 20161028
